FAERS Safety Report 5862724-9 (Version None)
Quarter: 2008Q3

REPORT INFORMATION
  Report Type: 
  Country: None (occurrence: None)
  Receive Date: 20080828
  Receipt Date: 20080820
  Transmission Date: 20090109
  Serious: Yes (Hospitalization, Other)
  Sender: FDA-Public Use
  Company Number: US-AMGEN-QUU302911

PATIENT
  Sex: Female

DRUGS (4)
  1. ENBREL [Suspect]
     Indication: RHEUMATOID ARTHRITIS
     Route: 058
     Dates: start: 20030101
  2. METHOTREXATE SODIUM [Concomitant]
     Dates: start: 20060515
  3. UNSPECIFIED ANTINEOPLASTIC AGENT [Concomitant]
  4. UNSPECIFIED RADIATION THERAPY [Concomitant]

REACTIONS (3)
  - BREAST MASS [None]
  - GASTROENTERITIS [None]
  - RHEUMATOID ARTHRITIS [None]
